FAERS Safety Report 6970019-5 (Version None)
Quarter: 2010Q3

REPORT INFORMATION
  Report Type: 
  Country: None (occurrence: None)
  Receive Date: 20100902
  Receipt Date: 20100817
  Transmission Date: 20110219
  Serious: Yes (Other)
  Sender: FDA-Public Use
  Company Number: ACO_01382_2010

PATIENT
  Sex: Female

DRUGS (9)
  1. AMPYRA [Suspect]
     Indication: PRODUCT USED FOR UNKNOWN INDICATION
     Dosage: 10 MG BID ORAL
     Route: 048
     Dates: start: 20100708, end: 20100711
  2. ASPIRIN [Concomitant]
  3. MULTI-VITAMINS [Concomitant]
  4. DICLOFENAC [Concomitant]
  5. SERTRALINE HYDROCHLORIDE [Concomitant]
  6. SIMVASTATIN MEPHA [Concomitant]
  7. DICYCLOMINE [Concomitant]
  8. AMANTADINE [Concomitant]
  9. BACLOFEN [Concomitant]

REACTIONS (8)
  - BURNING SENSATION [None]
  - CONVULSION [None]
  - DIZZINESS [None]
  - DYSURIA [None]
  - HYPOAESTHESIA [None]
  - INAPPROPRIATE SCHEDULE OF DRUG ADMINISTRATION [None]
  - SELF-MEDICATION [None]
  - URINARY TRACT INFECTION [None]
